FAERS Safety Report 4725659-0 (Version None)
Quarter: 2005Q3

REPORT INFORMATION
  Report Type: 
  Country: None (occurrence: None)
  Receive Date: 20050722
  Receipt Date: 20050722
  Transmission Date: 20060218
  Serious: Yes (Hospitalization)
  Sender: FDA-Public Use
  Company Number: None

PATIENT
  Age: 56 Year
  Sex: Male
  Weight: 87.9978 kg

DRUGS (8)
  1. CETUXIMAB [Suspect]
     Indication: TONSIL CANCER
     Dosage: 250 MG/M2  WEEKLY INTRAVENOUS
     Route: 042
     Dates: start: 20050525, end: 20050721
  2. DECADRON [Concomitant]
  3. BENADRYL [Concomitant]
  4. ANZEMET [Concomitant]
  5. TAXOL [Concomitant]
  6. CARBOPLATIN [Concomitant]
  7. XRT [Concomitant]
  8. IV FLUIDS [Concomitant]

REACTIONS (2)
  - CHEST X-RAY ABNORMAL [None]
  - PYREXIA [None]
